FAERS Safety Report 7594065-6 (Version None)
Quarter: 2011Q3

REPORT INFORMATION
  Report Type: 
  Country: None (occurrence: None)
  Receive Date: 20110706
  Receipt Date: 20110701
  Transmission Date: 20111222
  Serious: Yes (Death, Hospitalization)
  Sender: FDA-Public Use
  Company Number: US-CEPHALON-2011002966

PATIENT
  Sex: Female
  Weight: 70 kg

DRUGS (9)
  1. CALCIUM AND VIT D [Concomitant]
  2. FISH OIL [Concomitant]
  3. NORCO [Concomitant]
  4. XANAX [Concomitant]
  5. PROCHLORPERAZINE MALEATE [Concomitant]
  6. RITUXAN [Suspect]
     Indication: NON-HODGKIN'S LYMPHOMA
     Route: 042
     Dates: start: 20110505
  7. ALLOPURINOL [Concomitant]
  8. TREANDA [Suspect]
     Indication: NON-HODGKIN'S LYMPHOMA
     Route: 041
     Dates: start: 20110505
  9. ZOFRAN [Concomitant]

REACTIONS (2)
  - DEHYDRATION [None]
  - NEUTROPENIA [None]
